FAERS Safety Report 5699399-8 (Version None)
Quarter: 2008Q2

REPORT INFORMATION
  Report Type: 
  Country: None (occurrence: None)
  Receive Date: 20080407
  Receipt Date: 20080325
  Transmission Date: 20081010
  Serious: Yes (Other)
  Sender: FDA-Public Use
  Company Number: 2008-02182

PATIENT

DRUGS (1)
  1. CARBOPLATIN [Suspect]
     Indication: EWING'S SARCOMA METASTATIC
     Dosage: 667 MG/M2, DAILY X 3 DAYS, INTRAVENOUS
     Route: 042

REACTIONS (1)
  - RENAL FAILURE CHRONIC [None]
